FAERS Safety Report 17203004 (Version 3)
Quarter: 2020Q4

REPORT INFORMATION
  Report Type: Spontaneous
  Country: FR (occurrence: FR)
  Receive Date: 20191226
  Receipt Date: 20201120
  Transmission Date: 20210113
  Serious: Yes (Death, Life-Threatening, Hospitalization, Disabling, Other)
  Sender: FDA-Public Use
  Company Number: FR-JNJFOC-20191234725

PATIENT

DRUGS (4)
  1. PARACETAMOL/PSEUDOEPHEDRINE HCL [Suspect]
     Active Substance: ACETAMINOPHEN\PSEUDOEPHEDRINE
     Indication: PRODUCT USED FOR UNKNOWN INDICATION
     Dosage: WHITE TABLET
     Route: 065
  2. ACTIFED ALLERGY CETIRIZINE 10MG TABLETS [Suspect]
     Active Substance: CETIRIZINE HYDROCHLORIDE
     Indication: PRODUCT USED FOR UNKNOWN INDICATION
     Route: 065
  3. ACTIFED (ACETAMINOPHEN\PSEUDOEPHEDRINE HYDROCHLORIDE\TRIPROLIDINE HYDROCHLORIDE) [Suspect]
     Active Substance: ACETAMINOPHEN\PSEUDOEPHEDRINE HYDROCHLORIDE\TRIPROLIDINE HYDROCHLORIDE
     Indication: PRODUCT USED FOR UNKNOWN INDICATION
     Route: 065
  4. PARACETAMOL/DIPHENHYDRAMINE HCL [Suspect]
     Active Substance: ACETAMINOPHEN\DIPHENHYDRAMINE HYDROCHLORIDE
     Indication: PRODUCT USED FOR UNKNOWN INDICATION
     Dosage: BLUE TABLET
     Route: 065

REACTIONS (16)
  - Cerebrovascular accident [Unknown]
  - Transient ischaemic attack [Unknown]
  - Drug reaction with eosinophilia and systemic symptoms [Unknown]
  - Acute generalised exanthematous pustulosis [Unknown]
  - Hypertension [Unknown]
  - Reversible cerebral vasoconstriction syndrome [Unknown]
  - Pancreatitis acute [Unknown]
  - Intentional product misuse [Unknown]
  - Toxic epidermal necrolysis [Unknown]
  - Coronary artery disease [Unknown]
  - Incorrect route of product administration [Unknown]
  - Death [Fatal]
  - Colitis ischaemic [Unknown]
  - Myocardial infarction [Unknown]
  - Atrial fibrillation [Unknown]
  - Product administered to patient of inappropriate age [Unknown]
